FAERS Safety Report 6795808-1 (Version None)
Quarter: 2010Q2

REPORT INFORMATION
  Report Type: 
  Country: None (occurrence: None)
  Receive Date: 20100625
  Receipt Date: 20100617
  Transmission Date: 20101027
  Serious: Yes (Hospitalization)
  Sender: FDA-Public Use
  Company Number: A0789972A

PATIENT
  Age: 52 Year
  Sex: Female

DRUGS (4)
  1. AVANDIA [Suspect]
     Route: 048
     Dates: start: 20010101, end: 20040101
  2. GLYBURIDE [Concomitant]
  3. ISORBID [Concomitant]
  4. PLAVIX [Concomitant]

REACTIONS (3)
  - CARDIAC FAILURE CONGESTIVE [None]
  - CORONARY ARTERY DISEASE [None]
  - MYOCARDIAL INFARCTION [None]
